FAERS Safety Report 9367217 (Version 1)
Quarter: 2013Q2

REPORT INFORMATION
  Report Type: Spontaneous
  Country: US (occurrence: US)
  Receive Date: 20130625
  Receipt Date: 20130625
  Transmission Date: 20140414
  Serious: No
  Sender: FDA-Public Use
  Company Number: US-ASTELLAS-2012US005526

PATIENT
  Sex: 0

DRUGS (4)
  1. VESICARE [Suspect]
     Indication: HYPERTONIC BLADDER
     Dosage: 5 MG, UID/QD
     Route: 048
     Dates: start: 201010
  2. ESTRADIOL W/NORETHISTERONE [Concomitant]
     Indication: HORMONE REPLACEMENT THERAPY
     Dosage: UNK
     Route: 048
  3. CALCIUM + VIT D [Concomitant]
     Indication: SUPPLEMENTATION THERAPY
     Dosage: 6 MG, UID/QD
     Route: 048
  4. BABY ASPIRIN [Concomitant]
     Indication: SUPPLEMENTATION THERAPY
     Dosage: 81 MG, UID/QD
     Route: 048

REACTIONS (1)
  - Cough [Unknown]
